FAERS Safety Report 24458108 (Version 1)
Quarter: 2024Q4

REPORT INFORMATION
  Report Type: Spontaneous
  Country: CN (occurrence: CN)
  Receive Date: 20241018
  Receipt Date: 20241018
  Transmission Date: 20250114
  Serious: No
  Sender: ROCHE
  Company Number: CN-BoehringerIngelheim-2023-BI-262367

PATIENT
  Age: 53 Year
  Sex: Male
  Weight: 78.0 kg

DRUGS (1)
  1. ALTEPLASE [Suspect]
     Active Substance: ALTEPLASE
     Indication: Cerebral infarction
     Dosage: 7.0 MG IV BOLUS (WITHIN 1 MINUTE), FOLLOWED BY 63.0 MG VIA PUMP FOR 1 HOUR.
     Route: 042
     Dates: start: 20230917, end: 20230917

REACTIONS (1)
  - Gingival bleeding [Recovered/Resolved]

NARRATIVE: CASE EVENT DATE: 20230917
